FAERS Safety Report 5929459-5 (Version None)
Quarter: 2008Q3

REPORT INFORMATION
  Report Type: 
  Country: None (occurrence: None)
  Receive Date: 20080924
  Receipt Date: 20080731
  Transmission Date: 20090109
  Serious: Yes (Hospitalization)
  Sender: FDA-Public Use
  Company Number: A03200803106

PATIENT
  Sex: Female

DRUGS (5)
  1. AMBIEN CR [Suspect]
     Dosage: ORAL
     Route: 048
  2. LORTAB - ACETAMINOPHEN + HYDROCODONE [Suspect]
  3. PERCOCET [Suspect]
  4. PHENERGAN HCL [Suspect]
  5. COMPAZINE [Suspect]

REACTIONS (1)
  - MULTIPLE DRUG OVERDOSE [None]
